FAERS Safety Report 10573737 (Version 2)
Quarter: 2015Q1

REPORT INFORMATION
  Report Type: Spontaneous
  Country: BR (occurrence: BR)
  Receive Date: 20141110
  Receipt Date: 20150213
  Transmission Date: 20150720
  Serious: Yes (Disabling, Other)
  Sender: FDA-Public Use
  Company Number: BR-ABBVIE-14P-020-1305469-00

PATIENT
  Sex: Female
  Weight: 55 kg

DRUGS (7)
  1. VITAMIN D [Concomitant]
     Active Substance: CHOLECALCIFEROL
     Indication: PRODUCT USED FOR UNKNOWN INDICATION
     Dosage: 20 DROPS PER WEEK
     Route: 048
  2. VITAMIN D [Concomitant]
     Active Substance: CHOLECALCIFEROL
     Dosage: 35 DROPS PER WEEK
     Route: 048
  3. VITAMIN D3 [Concomitant]
     Active Substance: CHOLECALCIFEROL
     Indication: VITAMIN D DECREASED
     Dosage: FORM STRENGTH: 1000UNITS/DROP (DAILY DOSE: 3 DROP)
     Dates: start: 2010
  4. SYNTHROID [Suspect]
     Active Substance: LEVOTHYROXINE SODIUM
     Indication: AUTOIMMUNE THYROIDITIS
     Dosage: DAILY DOSE 88MCG DAILY IN AM BEFORE BREAKFAST (IN FASTING)
     Route: 048
     Dates: start: 1982
  5. SYNTHROID [Suspect]
     Active Substance: LEVOTHYROXINE SODIUM
     Dosage: 100 MCG DAILY IN AM BEFORE BREAKFAST (IN FASTING)
     Route: 048
  6. SYNTHROID [Suspect]
     Active Substance: LEVOTHYROXINE SODIUM
     Dosage: 88 MCG AND 100 MCG (ALTERNATE DAYS)
     Route: 048
     Dates: start: 2013
  7. VITAMIN K2 [Suspect]
     Active Substance: MENAQUINONE 6
     Indication: PRODUCT USED FOR UNKNOWN INDICATION
     Route: 065
     Dates: start: 201308, end: 201312

REACTIONS (13)
  - Upper limb fracture [Recovered/Resolved]
  - Gastrointestinal disorder [Unknown]
  - Headache [Unknown]
  - Headache [Recovered/Resolved]
  - Agitation [Recovered/Resolved]
  - Weight decreased [Recovered/Resolved]
  - Gingival bleeding [Recovered/Resolved]
  - Hyperhidrosis [Recovered/Resolved]
  - Dehydration [Unknown]
  - Tachycardia [Recovered/Resolved]
  - Hearing impaired [Not Recovered/Not Resolved]
  - Unevaluable event [Recovered/Resolved]
  - Gastrointestinal pain [Unknown]

NARRATIVE: CASE EVENT DATE: 2013
